FAERS Safety Report 18861169 (Version 7)
Quarter: 2022Q1

REPORT INFORMATION
  Report Type: Report from Study
  Country: US (occurrence: US)
  Receive Date: 20210208
  Receipt Date: 20220113
  Transmission Date: 20220423
  Serious: No
  Sender: FDA-Public Use
  Company Number: NVSC2021US022316

PATIENT
  Age: 66 Year
  Sex: Female

DRUGS (3)
  1. ENTRESTO [Suspect]
     Active Substance: SACUBITRIL\VALSARTAN
     Indication: Product used for unknown indication
     Dosage: 50 MG, BID (24/26 MG)
     Route: 048
     Dates: start: 20210113
  2. LISINOPRIL [Suspect]
     Active Substance: LISINOPRIL
     Indication: Product used for unknown indication
     Route: 065
  3. METOPROLOL [Suspect]
     Active Substance: METOPROLOL
     Indication: Product used for unknown indication
     Dosage: UNK
     Route: 065

REACTIONS (20)
  - Visual impairment [Unknown]
  - Joint injury [Recovering/Resolving]
  - Dyspnoea [Recovered/Resolved]
  - Palpitations [Recovered/Resolved]
  - Gait disturbance [Not Recovered/Not Resolved]
  - Limb discomfort [Not Recovered/Not Resolved]
  - Discomfort [Unknown]
  - Insomnia [Unknown]
  - Fall [Recovering/Resolving]
  - Dizziness [Unknown]
  - Weight fluctuation [Unknown]
  - Blood pressure increased [Unknown]
  - Thyroiditis [Unknown]
  - Swelling [Unknown]
  - Rotator cuff syndrome [Unknown]
  - Anxiety [Unknown]
  - Chest pain [Unknown]
  - Cough [Unknown]
  - Peripheral swelling [Unknown]
  - Alopecia [Unknown]

NARRATIVE: CASE EVENT DATE: 20210113
